FAERS Safety Report 9254079 (Version 1)
Quarter: 2013Q2

REPORT INFORMATION
  Report Type: Spontaneous
  Country: FR (occurrence: FR)
  Receive Date: 20130425
  Receipt Date: 20130425
  Transmission Date: 20140414
  Serious: Yes (Hospitalization)
  Sender: FDA-Public Use
  Company Number: FR-SANOFI-AVENTIS-2013SA041573

PATIENT
  Age: 93 Year
  Sex: Female

DRUGS (7)
  1. LASILIX [Suspect]
     Indication: HYPERTENSION
     Dosage: STRENGTH:40MG DOSE:1 UNIT(S)
     Route: 048
     Dates: end: 20130225
  2. PERINDOPRIL [Suspect]
     Indication: HYPERTENSION
     Dosage: STRENGTH:4MG DOSE:1 UNIT(S)
     Route: 048
  3. OMEPRAZOLE [Suspect]
     Indication: PRODUCT USED FOR UNKNOWN INDICATION
     Dosage: STRENGTH:20MG DOSE:1 UNIT(S)
     Route: 048
     Dates: end: 20130225
  4. SEROPLEX [Suspect]
     Indication: PRODUCT USED FOR UNKNOWN INDICATION
     Dosage: STRENGTH:5MG DOSE:1 UNIT(S)
     Route: 048
     Dates: end: 20130225
  5. CRESTOR [Suspect]
     Indication: HYPERCHOLESTEROLAEMIA
     Dosage: STRENGTH: 10MG DOSE:1 UNIT(S)
     Route: 048
  6. BISOCE [Concomitant]
     Indication: HYPERTENSION
     Dosage: STRENGTH: 2.5MG DOSE:2 UNIT(S)
     Route: 048
  7. KARDEGIC [Concomitant]
     Dosage: STRENGTH: 75MG DOSE:1 UNIT(S)
     Route: 048

REACTIONS (2)
  - Confusional state [Recovered/Resolved]
  - Hyponatraemia [Recovered/Resolved]
